FAERS Safety Report 8539286-0 (Version None)
Quarter: 2012Q3

REPORT INFORMATION
  Report Type: 
  Country: None (occurrence: None)
  Receive Date: 20120726
  Receipt Date: 20110906
  Transmission Date: 20120928
  Serious: No
  Sender: FDA-Public Use
  Company Number: US-ASTRAZENECA-2011SE44262

PATIENT
  Age: 81 Year
  Sex: Male

DRUGS (5)
  1. SEROQUEL XR [Suspect]
     Route: 048
  2. SEROQUEL XR [Suspect]
     Route: 048
  3. CRESTOR [Suspect]
     Route: 048
  4. SEROQUEL XR [Suspect]
     Indication: INSOMNIA
     Dosage: 25 MG 1 TO 2 TABLET AT BED TIME
     Route: 048
  5. SEROQUEL XR [Suspect]
     Indication: BIPOLAR DISORDER
     Dosage: 25 MG 1 TO 2 TABLET AT BED TIME
     Route: 048

REACTIONS (5)
  - DEMENTIA ALZHEIMER'S TYPE [None]
  - DEMENTIA [None]
  - INSOMNIA [None]
  - DRUG DOSE OMISSION [None]
  - MEMORY IMPAIRMENT [None]
